FAERS Safety Report 8799001 (Version 2)
Quarter: 2013Q1

REPORT INFORMATION
  Report Type: Spontaneous
  Country: US (occurrence: None)
  Receive Date: 20120913
  Receipt Date: 20121214
  Transmission Date: 20140127
  Serious: Yes (Hospitalization)
  Sender: FDA-Public Use
  Company Number: ACO_31831_2012

PATIENT
  Age: 53 Year
  Sex: Male
  Weight: 89.8 kg

DRUGS (3)
  1. AMPYRA [Suspect]
     Indication: GAIT DISTURBANCE
     Route: 048
     Dates: start: 201206, end: 20120905
  2. COPAXONE (GLATIRAMER ACETATE) [Concomitant]
  3. TIZANIDINE (TIZANIDINE HYDROCHLORIDE) [Concomitant]

REACTIONS (2)
  - Atrial fibrillation [None]
  - Drug ineffective [None]
